FAERS Safety Report 12740007 (Version 2)
Quarter: 2016Q4

REPORT INFORMATION
  Report Type: Spontaneous
  Country: US (occurrence: US)
  Receive Date: 20160913
  Receipt Date: 20161109
  Transmission Date: 20170207
  Serious: Yes (Other)
  Sender: FDA-Public Use
  Company Number: US-CELGENEUS-USA-2016092078

PATIENT
  Age: 50 Year
  Sex: Male

DRUGS (2)
  1. OTEZLA [Suspect]
     Active Substance: APREMILAST
     Indication: PSORIASIS
     Dosage: 60 MILLIGRAM
     Route: 048
     Dates: start: 20160504
  2. TAR SHAMPOO [Concomitant]
     Indication: PSORIASIS
     Route: 065
     Dates: start: 2015

REACTIONS (1)
  - Psoriasis [Unknown]

NARRATIVE: CASE EVENT DATE: 201605
